FAERS Safety Report 8182768-4 (Version None)
Quarter: 2012Q1

REPORT INFORMATION
  Report Type: 
  Country: None (occurrence: None)
  Receive Date: 20120305
  Receipt Date: 20120224
  Transmission Date: 20120608
  Serious: Yes (Other)
  Sender: FDA-Public Use
  Company Number: US-BAYER-2011-090592

PATIENT
  Age: 44 Year
  Sex: Female
  Weight: 51.247 kg

DRUGS (9)
  1. ONE A DAY [Concomitant]
     Indication: VITAMIN SUPPLEMENTATION
     Dosage: 1 DF, PRN
  2. LISINOPRIL COMP [Concomitant]
  3. YASMIN [Suspect]
     Indication: CONTRACEPTION
     Dosage: UNK
     Dates: start: 20030716, end: 20070116
  4. EXCEDRIN EXTRA STRENGTH TABLETS [Concomitant]
     Indication: HEADACHE
     Dosage: 2 DF, PRN
  5. YAZ [Suspect]
     Indication: CONTRACEPTION
     Dosage: UNK
     Dates: start: 20070308, end: 20081014
  6. MIRCETTE [Concomitant]
     Dosage: UNK
     Dates: start: 20081001
  7. CALCIUM [Concomitant]
     Indication: MINERAL SUPPLEMENTATION
     Dosage: 2 DF, PRN
  8. NAPROXEN (ALEVE) [Concomitant]
     Indication: NASOPHARYNGITIS
     Dosage: 1 DF, PRN
  9. KARIVA [Concomitant]

REACTIONS (6)
  - MENTAL DISORDER [None]
  - PAIN [None]
  - INJURY [None]
  - ABDOMINAL PAIN [None]
  - EMOTIONAL DISTRESS [None]
  - CHOLELITHIASIS [None]
